FAERS Safety Report 9105382 (Version 2)
Quarter: 2013Q3

REPORT INFORMATION
  Report Type: Spontaneous
  Country: US (occurrence: US)
  Receive Date: 20130220
  Receipt Date: 20130822
  Transmission Date: 20140515
  Serious: Yes (Other)
  Sender: FDA-Public Use
  Company Number: CHPA2012US026407

PATIENT
  Sex: Female

DRUGS (4)
  1. MAALOX UNKNOWN [Suspect]
     Indication: DYSPEPSIA
     Dosage: 2 DF, QD
     Dates: end: 2012
  2. NEXIUM//ESOMEPRAZOLE SODIUM [Concomitant]
     Dosage: 40 MG, QD
  3. ZANTAC [Concomitant]
     Dosage: 300 MG, QD
  4. TUMS [Concomitant]
     Dosage: UNK, UNK

REACTIONS (3)
  - Ulcer [Recovering/Resolving]
  - Disease recurrence [Recovering/Resolving]
  - Abdominal pain upper [Recovered/Resolved]
